FAERS Safety Report 7333630 (Version 33)
Quarter: 2016Q1

REPORT INFORMATION
  Report Type: Report from Study
  Country: CA (occurrence: CA)
  Receive Date: 20100326
  Receipt Date: 20160325
  Transmission Date: 20160526
  Serious: Yes (Hospitalization, Other)
  Sender: FDA-Public Use
  Company Number: PHHY2010CA16031

PATIENT
  Age: 61 Year
  Sex: Female

DRUGS (2)
  1. SANDOSTATIN LAR DEPOT [Suspect]
     Active Substance: OCTREOTIDE ACETATE
     Indication: PANCREATIC NEUROENDOCRINE TUMOUR
     Dosage: 30 MG, EVERY FOUR WEEKS
     Route: 030
     Dates: start: 20100314
  2. LIPITOR [Concomitant]
     Active Substance: ATORVASTATIN CALCIUM
     Indication: PRODUCT USED FOR UNKNOWN INDICATION
     Route: 065

REACTIONS (8)
  - Systolic hypertension [Unknown]
  - Renal impairment [Unknown]
  - Pain [Not Recovered/Not Resolved]
  - Acquired cystic kidney disease [Unknown]
  - Blood pressure diastolic decreased [Unknown]
  - Angiopathy [Unknown]
  - Cough [Unknown]
  - Injection site haemorrhage [Recovered/Resolved]

NARRATIVE: CASE EVENT DATE: 20130902
